FAERS Safety Report 20292062 (Version 2)
Quarter: 2022Q1

REPORT INFORMATION
  Report Type: Spontaneous
  Country: PL (occurrence: PL)
  Receive Date: 20220104
  Receipt Date: 20220307
  Transmission Date: 20220424
  Serious: Yes (Other)
  Sender: FDA-Public Use
  Company Number: PL-BAUSCH-BL-2022-000004

PATIENT

DRUGS (1)
  1. WELLBUTRIN XL [Suspect]
     Active Substance: BUPROPION HYDROCHLORIDE
     Indication: Depression
     Dosage: DURATION 3 MONTHS
     Route: 065

REACTIONS (5)
  - Mental impairment [Unknown]
  - Asthenia [Unknown]
  - Drug ineffective [Unknown]
  - Product complaint [Unknown]
  - Suspected counterfeit product [Unknown]
